FAERS Safety Report 6368443-7 (Version None)
Quarter: 2009Q3

REPORT INFORMATION
  Report Type: 
  Country: None (occurrence: None)
  Receive Date: 20090922
  Receipt Date: 20090910
  Transmission Date: 20100115
  Serious: No
  Sender: FDA-Public Use
  Company Number: US-B.I. PHARMACEUTICALS,INC./RIDGEFIELD-2009-BP-10704BP

PATIENT
  Age: 62 Year
  Sex: Female

DRUGS (5)
  1. MIRAPEX [Suspect]
     Indication: RESTLESS LEGS SYNDROME
     Dosage: 0.25 MG
     Route: 048
     Dates: start: 20070101
  2. ATENOLOL [Concomitant]
     Indication: HYPERTENSION
  3. WELLBUTRIN [Concomitant]
     Indication: DEPRESSION
  4. LEXAPRO [Concomitant]
     Indication: DEPRESSION
  5. PROGESTERONE [Concomitant]
     Indication: MENOPAUSE

REACTIONS (1)
  - RESTLESS LEGS SYNDROME [None]
